FAERS Safety Report 10273418 (Version 1)
Quarter: 2014Q2

REPORT INFORMATION
  Report Type: Spontaneous
  Country: US (occurrence: None)
  Receive Date: 20140630
  Receipt Date: 20140630
  Transmission Date: 20141212
  Serious: Yes (Life-Threatening, Disabling, Other)
  Sender: FDA-Public Use
  Company Number: None

PATIENT
  Age: 76 Year
  Sex: Female
  Weight: 102.06 kg

DRUGS (18)
  1. ATROVASTATIN CALCIUM [Suspect]
     Indication: LOW DENSITY LIPOPROTEIN INCREASED
     Dosage: 40 MG 1 TABLET DAILY ONCE DAILY AT BEDTIME ORALLY
     Route: 048
     Dates: start: 20140107, end: 20140321
  2. ATROVASTATIN CALCIUM [Suspect]
     Indication: HYPERTENSION
     Dosage: 40 MG 1 TABLET DAILY ONCE DAILY AT BEDTIME ORALLY
     Route: 048
     Dates: start: 20140107, end: 20140321
  3. XARELTO [Concomitant]
  4. IRBESARTAN [Concomitant]
  5. VERAPIMIL [Concomitant]
  6. LEVOTHYROXINE [Concomitant]
  7. ACTONEL [Concomitant]
  8. TYENOL EXTRA - STRENGTH [Concomitant]
  9. NASONEX [Concomitant]
  10. ALLEGRA [Concomitant]
  11. NETTY POT [Concomitant]
  12. TONIC WATER [Concomitant]
  13. CALCIUM [Concomitant]
  14. MAGNESIUM [Concomitant]
  15. VIT D [Concomitant]
  16. POTASSIUM - MULTIVITAMINS [Concomitant]
  17. LISINOPRIL [Suspect]
     Indication: HYPERTENSION
     Dates: start: 2004
  18. CEPHALEXIN [Suspect]
     Indication: NASAL OPERATION
     Dates: start: 2014

REACTIONS (5)
  - Pain in extremity [None]
  - Feeling abnormal [None]
  - Fear [None]
  - Fall [None]
  - Urinary incontinence [None]
